FAERS Safety Report 23768870 (Version 1)
Quarter: 2024Q2

REPORT INFORMATION
  Report Type: Report from Study
  Country: IL (occurrence: IL)
  Receive Date: 20240422
  Receipt Date: 20240422
  Transmission Date: 20240716
  Serious: Yes (Hospitalization, Other)
  Sender: FDA-Public Use
  Company Number: IL-SA-SAC20230904001614

PATIENT
  Age: 38 Year
  Sex: Female

DRUGS (3)
  1. ALEMTUZUMAB [Suspect]
     Active Substance: ALEMTUZUMAB
     Indication: Multiple sclerosis
     Dosage: 12 MG, QD
     Route: 041
     Dates: start: 20230827, end: 20230831
  2. LAMICTAL [Concomitant]
     Active Substance: LAMOTRIGINE
     Indication: Loss of consciousness
     Dosage: UNK
     Dates: start: 2023
  3. LAMICTAL [Concomitant]
     Active Substance: LAMOTRIGINE
     Indication: Epilepsy

REACTIONS (10)
  - Confusional state [Recovering/Resolving]
  - Disorientation [Recovering/Resolving]
  - Hyperthyroidism [Not Recovered/Not Resolved]
  - Mouth haemorrhage [Recovering/Resolving]
  - Skin burning sensation [Not Recovered/Not Resolved]
  - Sensitive skin [Not Recovered/Not Resolved]
  - Lymphocyte count abnormal [Not Recovered/Not Resolved]
  - Abdominal pain [Recovering/Resolving]
  - White blood cell count decreased [Not Recovered/Not Resolved]
  - White blood cells urine positive [Unknown]

NARRATIVE: CASE EVENT DATE: 20230828
